FAERS Safety Report 5952998-8 (Version None)
Quarter: 2008Q4

REPORT INFORMATION
  Report Type: 
  Country: None (occurrence: None)
  Receive Date: 20081114
  Receipt Date: 20080717
  Transmission Date: 20090506
  Serious: Yes (Hospitalization)
  Sender: FDA-Public Use
  Company Number: US-BRISTOL-MYERS SQUIBB COMPANY-14133466

PATIENT
  Age: 42 Year
  Sex: Female
  Weight: 105 kg

DRUGS (5)
  1. IXEMPRA KIT [Suspect]
     Indication: BREAST CANCER METASTATIC
     Dosage: GIVEN EVERY THREE WEEKS
     Route: 040
     Dates: start: 20071221, end: 20071221
  2. CAPECITABINE [Concomitant]
     Indication: DISEASE PROGRESSION
     Dates: start: 20070801, end: 20071201
  3. CIMETIDINE [Concomitant]
     Indication: PREMEDICATION
     Dates: start: 20071221
  4. DIPHENHYDRAMINE HCL [Concomitant]
     Indication: PREMEDICATION
     Dates: start: 20071221
  5. ITRACONAZOLE [Concomitant]

REACTIONS (3)
  - FEBRILE NEUTROPENIA [None]
  - MUCOSAL INFLAMMATION [None]
  - PALMAR-PLANTAR ERYTHRODYSAESTHESIA SYNDROME [None]
